FAERS Safety Report 20848758 (Version 2)
Quarter: 2022Q4

REPORT INFORMATION
  Report Type: Report from Study
  Country: JP (occurrence: JP)
  Receive Date: 20220519
  Receipt Date: 20221202
  Transmission Date: 20230113
  Serious: Yes (Death, Hospitalization)
  Sender: FDA-Public Use
  Company Number: JP-Merck Healthcare KGaA-9270329

PATIENT
  Age: 80 Year
  Sex: Female
  Weight: 47 kg

DRUGS (9)
  1. BAVENCIO [Suspect]
     Active Substance: AVELUMAB
     Indication: Transitional cell carcinoma
     Route: 041
     Dates: start: 20210319, end: 20210319
  2. BAVENCIO [Suspect]
     Active Substance: AVELUMAB
     Route: 041
     Dates: start: 20210402, end: 20220428
  3. BAVENCIO [Suspect]
     Active Substance: AVELUMAB
     Route: 041
     Dates: start: 20220304, end: 20220318
  4. ACETAMINOPHEN [Concomitant]
     Active Substance: ACETAMINOPHEN
     Indication: Premedication
     Route: 048
     Dates: start: 20210319, end: 20210319
  5. ACETAMINOPHEN [Concomitant]
     Active Substance: ACETAMINOPHEN
     Route: 048
     Dates: start: 20210402, end: 20220107
  6. ACETAMINOPHEN [Concomitant]
     Active Substance: ACETAMINOPHEN
     Route: 048
     Dates: start: 20220304, end: 20220318
  7. DIPHENHYDRAMINE [Concomitant]
     Active Substance: DIPHENHYDRAMINE
     Indication: Premedication
     Route: 048
     Dates: start: 20210319, end: 20210319
  8. DIPHENHYDRAMINE [Concomitant]
     Active Substance: DIPHENHYDRAMINE
     Route: 048
     Dates: start: 20210402, end: 20220107
  9. DIPHENHYDRAMINE [Concomitant]
     Active Substance: DIPHENHYDRAMINE
     Route: 048
     Dates: start: 20220304, end: 20220318

REACTIONS (5)
  - Death [Fatal]
  - Haematuria [Recovering/Resolving]
  - Hypoaesthesia [Unknown]
  - Sensory disturbance [Unknown]
  - Pruritus [Unknown]

NARRATIVE: CASE EVENT DATE: 20210101
